FAERS Safety Report 18891231 (Version 1)
Quarter: 2021Q1

REPORT INFORMATION
  Report Type: Spontaneous
  Country: VN (occurrence: VN)
  Receive Date: 20210215
  Receipt Date: 20210215
  Transmission Date: 20210420
  Serious: Yes (Hospitalization, Other)
  Sender: FDA-Public Use
  Company Number: VN-LEADINGPHARMA-VN-2021LEALIT00059

PATIENT
  Sex: Female
  Weight: 1.43 kg

DRUGS (9)
  1. SILDENAFIL. [Concomitant]
     Active Substance: SILDENAFIL
     Dosage: 1 MG/KG/12 H
     Route: 065
  2. FUROSEMIDE TABLETS USP [Suspect]
     Active Substance: FUROSEMIDE
     Indication: BRONCHOPULMONARY DYSPLASIA
     Dosage: 1MG/KG/12H
     Route: 065
  3. TOCOPHEROL [Concomitant]
     Active Substance: TOCOPHEROL
     Indication: BRONCHOPULMONARY DYSPLASIA
     Route: 065
  4. RETINOL [Concomitant]
     Active Substance: RETINOL
     Indication: BRONCHOPULMONARY DYSPLASIA
     Route: 065
  5. CORTICOSTEROID NOS [Concomitant]
     Active Substance: CORTICOSTEROID NOS
     Indication: BRONCHOPULMONARY DYSPLASIA
     Dosage: 100  MCG/KG
     Route: 065
  6. IPRATROPIUM BROMIDE. [Concomitant]
     Active Substance: IPRATROPIUM BROMIDE
     Indication: BRONCHOPULMONARY DYSPLASIA
     Route: 065
  7. SILDENAFIL. [Concomitant]
     Active Substance: SILDENAFIL
     Dosage: 1 MG/KG/6 H
     Route: 065
  8. SPIRONOLACTONE. [Concomitant]
     Active Substance: SPIRONOLACTONE
     Indication: BRONCHOPULMONARY DYSPLASIA
     Dosage: 2 MG/KG/12 H
     Route: 065
  9. SILDENAFIL. [Concomitant]
     Active Substance: SILDENAFIL
     Dosage: 0.5 MG/KG/12 H
     Route: 065

REACTIONS (1)
  - Drug ineffective [Unknown]
